FAERS Safety Report 18496257 (Version 1)
Quarter: 2020Q4

REPORT INFORMATION
  Report Type: Spontaneous
  Country: US (occurrence: US)
  Receive Date: 20201112
  Receipt Date: 20201112
  Transmission Date: 20210114
  Serious: Yes (Disabling)
  Sender: FDA-Public Use
  Company Number: None

PATIENT
  Age: 38 Year
  Sex: Male
  Weight: 107.1 kg

DRUGS (1)
  1. VENOFER [Suspect]
     Active Substance: IRON SUCROSE
     Indication: IRON DEFICIENCY
     Dosage: ?          OTHER FREQUENCY:THREE TIMES WEEKLY;?
     Route: 042
     Dates: start: 20201019, end: 20201021

REACTIONS (3)
  - Infusion site extravasation [None]
  - Infusion site pain [None]
  - Paravenous drug administration [None]

NARRATIVE: CASE EVENT DATE: 20201021
